FAERS Safety Report 18051222 (Version 3)
Quarter: 2020Q3

REPORT INFORMATION
  Report Type: Spontaneous
  Country: US (occurrence: US)
  Receive Date: 20200721
  Receipt Date: 20200729
  Transmission Date: 20201103
  Serious: No
  Sender: FDA-Public Use
  Company Number: US-PFIZER INC-2020277252

PATIENT
  Age: 77 Year
  Sex: Female
  Weight: 62.14 kg

DRUGS (1)
  1. PHENELZINE SULFATE. [Suspect]
     Active Substance: PHENELZINE SULFATE
     Indication: DEPRESSION
     Dosage: 4 DF, DAILY (15MG TABLET, 4 TABLETS A DAY)
     Route: 048
     Dates: start: 1994

REACTIONS (2)
  - Auditory disorder [Unknown]
  - Therapeutic product effect incomplete [Unknown]
